FAERS Safety Report 6186369-9 (Version None)
Quarter: 2009Q2

REPORT INFORMATION
  Report Type: 
  Country: None (occurrence: None)
  Receive Date: 20090511
  Receipt Date: 20090504
  Transmission Date: 20091009
  Serious: Yes (Hospitalization, Other)
  Sender: FDA-Public Use
  Company Number: CA-ABBOTT-09P-028-0569171-00

PATIENT
  Sex: Female
  Weight: 57.204 kg

DRUGS (6)
  1. HUMIRA [Suspect]
     Indication: RHEUMATOID ARTHRITIS
     Route: 058
     Dates: start: 20060424, end: 20090301
  2. ARAVA [Concomitant]
     Indication: DRUG USE FOR UNKNOWN INDICATION
  3. ASPIRIN [Concomitant]
     Indication: DRUG USE FOR UNKNOWN INDICATION
  4. MULTI-VITAMIN [Concomitant]
     Indication: DRUG USE FOR UNKNOWN INDICATION
  5. VITAMIN B-12 [Concomitant]
     Indication: DRUG USE FOR UNKNOWN INDICATION
  6. TYLENOL W/ CODEINE [Concomitant]
     Indication: DRUG USE FOR UNKNOWN INDICATION

REACTIONS (6)
  - CONFUSIONAL STATE [None]
  - JOINT SWELLING [None]
  - OEDEMA PERIPHERAL [None]
  - OSTEOARTHRITIS [None]
  - RHEUMATOID ARTHRITIS [None]
  - TREMOR [None]
